FAERS Safety Report 6064002-4 (Version None)
Quarter: 2009Q1

REPORT INFORMATION
  Report Type: 
  Country: None (occurrence: None)
  Receive Date: 20090130
  Receipt Date: 20090120
  Transmission Date: 20090719
  Serious: Yes (Hospitalization, Disabling)
  Sender: FDA-Public Use
  Company Number: OSCN-PR-0701L-0028

PATIENT
  Sex: Male
  Weight: 90 kg

DRUGS (1)
  1. OMNISCAN [Suspect]
     Indication: DRUG USE FOR UNKNOWN INDICATION
     Dosage: 20 ML, SINGLE DOSE, I.V.
     Route: 042

REACTIONS (12)
  - BLOOD CREATININE INCREASED [None]
  - DIALYSIS [None]
  - EXTRADURAL ABSCESS [None]
  - HAEMODIALYSIS [None]
  - METABOLIC ACIDOSIS [None]
  - NEPHROGENIC SYSTEMIC FIBROSIS [None]
  - RASH GENERALISED [None]
  - RENAL FAILURE ACUTE [None]
  - RENAL TUBULAR NECROSIS [None]
  - RHABDOMYOLYSIS [None]
  - SHOCK [None]
  - STAPHYLOCOCCAL BACTERAEMIA [None]
